FAERS Safety Report 7055941-6 (Version None)
Quarter: 2010Q4

REPORT INFORMATION
  Report Type: 
  Country: None (occurrence: None)
  Receive Date: 20101021
  Receipt Date: 20101015
  Transmission Date: 20110411
  Serious: Yes (Hospitalization, Disabling)
  Sender: FDA-Public Use
  Company Number: A0778206A

PATIENT
  Age: 59 Year
  Sex: Male

DRUGS (9)
  1. AVANDAMET [Suspect]
     Dosage: 1TAB TWICE PER DAY
     Route: 048
     Dates: start: 20030125, end: 20050320
  2. AVANDIA [Suspect]
     Dosage: 4MG TWICE PER DAY
     Route: 048
     Dates: start: 20011020, end: 20060301
  3. ASPIRIN [Concomitant]
  4. PLAVIX [Concomitant]
  5. LASIX [Concomitant]
  6. NOVOLIN 70/30 [Concomitant]
  7. LOPRESSOR [Concomitant]
  8. VASOTEC [Concomitant]
  9. METFORMIN [Concomitant]

REACTIONS (4)
  - CARDIAC FAILURE CONGESTIVE [None]
  - FALL [None]
  - MYOCARDIAL INFARCTION [None]
  - PNEUMONIA [None]
